FAERS Safety Report 8070384-4 (Version None)
Quarter: 2012Q1

REPORT INFORMATION
  Report Type: 
  Country: None (occurrence: None)
  Receive Date: 20120125
  Receipt Date: 20120118
  Transmission Date: 20120608
  Serious: Yes (Hospitalization, Other)
  Sender: FDA-Public Use
  Company Number: DE-B.I. PHARMACEUTICALS,INC./RIDGEFIELD-2012-DE-00127DE

PATIENT
  Sex: Male

DRUGS (3)
  1. PRADAXA [Suspect]
     Indication: TACHYARRHYTHMIA
     Dosage: 300 MG
     Dates: start: 20110928
  2. METOPROLOL [Concomitant]
     Dosage: 200 MG
  3. TORSEMIDE [Concomitant]
     Dosage: 10 MG

REACTIONS (1)
  - CEREBROVASCULAR ACCIDENT [None]
